FAERS Safety Report 6242740-8 (Version None)
Quarter: 2009Q2

REPORT INFORMATION
  Report Type: 
  Country: None (occurrence: None)
  Receive Date: 20090624
  Receipt Date: 20090616
  Transmission Date: 20091009
  Serious: Yes (Other)
  Sender: FDA-Public Use
  Company Number: JP-B.I. PHARMACEUTICALS,INC./RIDGEFIELD-2009-BP-07117NB

PATIENT

DRUGS (7)
  1. MICARDIS [Suspect]
     Route: 048
  2. GLUFAST [Concomitant]
     Route: 048
  3. GLYCORAN [Concomitant]
     Route: 048
  4. ACTOS [Concomitant]
     Route: 048
  5. ZYLORIC [Concomitant]
     Route: 048
  6. BASEN [Concomitant]
     Route: 048
  7. LIPITOR [Concomitant]
     Route: 048

REACTIONS (5)
  - BLOOD CREATININE INCREASED [None]
  - DRUG ABUSE [None]
  - MALAISE [None]
  - OEDEMA [None]
  - SUICIDE ATTEMPT [None]
